FAERS Safety Report 24744526 (Version 2)
Quarter: 2025Q2

REPORT INFORMATION
  Report Type: Spontaneous
  Country: US (occurrence: US)
  Receive Date: 20241217
  Receipt Date: 20250604
  Transmission Date: 20250716
  Serious: No
  Sender: NOVARTIS
  Company Number: US-002147023-NVSC2024US239138

PATIENT
  Sex: Male

DRUGS (2)
  1. MEKINIST [Suspect]
     Active Substance: TRAMETINIB DIMETHYL SULFOXIDE
     Indication: Langerhans^ cell histiocytosis
     Dosage: 2 MG, QD
     Route: 048
     Dates: start: 202403
  2. MEKINIST [Suspect]
     Active Substance: TRAMETINIB DIMETHYL SULFOXIDE
     Dosage: 1 MG, QD(0.5MG)
     Route: 050

REACTIONS (3)
  - Nail infection [Unknown]
  - Folliculitis [Unknown]
  - Nail hypertrophy [Unknown]
